FAERS Safety Report 20404237 (Version 1)
Quarter: 2022Q1

REPORT INFORMATION
  Report Type: Other
  Country: AU (occurrence: AU)
  Receive Date: 20220131
  Receipt Date: 20220131
  Transmission Date: 20220423
  Serious: Yes (Other)
  Sender: FDA-Public Use
  Company Number: AU-ALEMBIC PHARMACUETICALS LIMITED-2021SCAL000656

PATIENT

DRUGS (2)
  1. VENLAFAXINE HYDROCHLORIDE [Suspect]
     Active Substance: VENLAFAXINE HYDROCHLORIDE
     Indication: Product used for unknown indication
     Dosage: UNKNOWN
     Route: 065
  2. ACETAMINOPHEN [Suspect]
     Active Substance: ACETAMINOPHEN
     Indication: Product used for unknown indication
     Dosage: UNKNOWN
     Route: 065

REACTIONS (14)
  - Bipolar II disorder [None]
  - Schizoaffective disorder [None]
  - Major depression [None]
  - Anger [None]
  - Anxiety [None]
  - Back pain [None]
  - Circadian rhythm sleep disorder [None]
  - Crying [None]
  - Emotional distress [None]
  - Fatigue [None]
  - Headache [None]
  - Illness [None]
  - Intentional overdose [None]
  - Paranoia [None]
